FAERS Safety Report 8358052-2 (Version None)
Quarter: 2012Q2

REPORT INFORMATION
  Report Type: 
  Country: None (occurrence: None)
  Receive Date: 20120514
  Receipt Date: 20110415
  Transmission Date: 20120825
  Serious: Yes (Other)
  Sender: FDA-Public Use
  Company Number: US-GLAXOSMITHKLINE-A0923136A

PATIENT
  Age: 44 Year
  Sex: Female

DRUGS (1)
  1. ALLI [Suspect]
     Indication: WEIGHT LOSS DIET
     Route: 048
     Dates: start: 20100701, end: 20120101

REACTIONS (7)
  - ALOPECIA [None]
  - BLADDER NEOPLASM [None]
  - PRODUCT QUALITY ISSUE [None]
  - GASTRIC DISORDER [None]
  - RENAL DISORDER [None]
  - BACK DISORDER [None]
  - HYPERTENSION [None]
